FAERS Safety Report 8574832-2 (Version None)
Quarter: 2012Q3

REPORT INFORMATION
  Report Type: 
  Country: None (occurrence: None)
  Receive Date: 20120807
  Receipt Date: 20120730
  Transmission Date: 20120928
  Serious: Yes (Other)
  Sender: FDA-Public Use
  Company Number: BR-BAYER-2012-076742

PATIENT
  Age: 45 Year
  Sex: Female
  Weight: 80 kg

DRUGS (2)
  1. CALCIUM CARBONATE [Concomitant]
     Indication: OSTEOPENIA
     Dosage: 2 DF, QD
     Route: 048
     Dates: start: 20110101
  2. MIRENA [Suspect]
     Indication: CONTRACEPTION
     Dosage: 20 ?G/D, CONT
     Route: 015
     Dates: start: 20120224, end: 20120727

REACTIONS (5)
  - OESTRADIOL INCREASED [None]
  - WEIGHT INCREASED [None]
  - BREAST ENLARGEMENT [None]
  - BLOOD TESTOSTERONE DECREASED [None]
  - C-REACTIVE PROTEIN INCREASED [None]
